FAERS Safety Report 4622445-7 (Version None)
Quarter: 2005Q1

REPORT INFORMATION
  Report Type: 
  Country: None (occurrence: None)
  Receive Date: 20050325
  Receipt Date: 20050325
  Transmission Date: 20050727
  Serious: Yes (Hospitalization)
  Sender: FDA-Public Use
  Company Number: None

PATIENT
  Age: 87 Year
  Sex: Female
  Weight: 58 kg

DRUGS (2)
  1. DIGOXIN [Suspect]
     Indication: CARDIAC FAILURE CONGESTIVE
  2. DIGOXIN [Suspect]
     Indication: CORONARY ARTERY DISEASE

REACTIONS (5)
  - ANOREXIA [None]
  - BLOOD POTASSIUM INCREASED [None]
  - NAUSEA [None]
  - SPEECH DISORDER [None]
  - VOMITING [None]
